FAERS Safety Report 8406982-5 (Version None)
Quarter: 2012Q2

REPORT INFORMATION
  Report Type: 
  Country: None (occurrence: None)
  Receive Date: 20120604
  Receipt Date: 20120521
  Transmission Date: 20120825
  Serious: Yes (Hospitalization, Other)
  Sender: FDA-Public Use
  Company Number: FR-CELGENEUS-056-21880-12052516

PATIENT
  Sex: Male

DRUGS (7)
  1. DOXORUBICIN HCL [Concomitant]
     Indication: B-CELL LYMPHOMA
     Route: 065
     Dates: start: 20111117
  2. PREDNISONE [Concomitant]
     Indication: B-CELL LYMPHOMA
     Route: 065
     Dates: start: 20111117
  3. VINCRISTINE [Concomitant]
     Indication: B-CELL LYMPHOMA
     Route: 065
     Dates: start: 20111117
  4. REVLIMID [Suspect]
     Indication: B-CELL LYMPHOMA
     Route: 048
     Dates: start: 20111117
  5. RITUXIMAB [Concomitant]
     Indication: B-CELL LYMPHOMA
     Route: 065
     Dates: start: 20111117
  6. CYCLOPHOSPHAMIDE [Concomitant]
     Indication: B-CELL LYMPHOMA
     Route: 065
     Dates: start: 20111117
  7. REVLIMID [Suspect]
     Route: 048

REACTIONS (4)
  - PANCREATIC CARCINOMA [None]
  - SMALL INTESTINAL PERFORATION [None]
  - SMALL INTESTINE CARCINOMA [None]
  - PERITONITIS [None]
